FAERS Safety Report 8101744-0 (Version None)
Quarter: 2012Q1

REPORT INFORMATION
  Report Type: 
  Country: None (occurrence: None)
  Receive Date: 20120131
  Receipt Date: 20120119
  Transmission Date: 20120608
  Serious: Yes (Other)
  Sender: FDA-Public Use
  Company Number: PHHY2011BR107604

PATIENT
  Sex: Male

DRUGS (1)
  1. FORMOTEROL FUMARATE [Suspect]
     Indication: COUGH
     Dosage: 1 INHALATION DAILY

REACTIONS (2)
  - RESPIRATORY TRACT CONGESTION [None]
  - INCREASED UPPER AIRWAY SECRETION [None]
